FAERS Safety Report 19798976 (Version 1)
Quarter: 2021Q3

REPORT INFORMATION
  Report Type: Spontaneous
  Country: US (occurrence: US)
  Receive Date: 20210907
  Receipt Date: 20210907
  Transmission Date: 20211014
  Serious: Yes (Hospitalization)
  Sender: FDA-Public Use
  Company Number: None

PATIENT
  Age: 61 Year
  Sex: Female

DRUGS (18)
  1. TACROLIMUS. [Suspect]
     Active Substance: TACROLIMUS
     Indication: RENAL TRANSPLANT
     Dosage: ?          OTHER FREQUENCY:2QAM1QHS;?
     Route: 048
     Dates: start: 20180130
  2. IBANDRONATE [Concomitant]
     Active Substance: IBANDRONATE SODIUM
  3. METOPROLOL TARTRATE. [Concomitant]
     Active Substance: METOPROLOL TARTRATE
  4. PREDNISONE. [Concomitant]
     Active Substance: PREDNISONE
  5. ZONISAMIDE. [Concomitant]
     Active Substance: ZONISAMIDE
  6. DULOXETINE. [Concomitant]
     Active Substance: DULOXETINE
  7. VITAMIN D [Concomitant]
     Active Substance: VITAMIN D NOS
  8. BUT/APAP/CAF [Concomitant]
  9. LEVETIRACETA [Concomitant]
     Active Substance: LEVETIRACETAM
  10. MYCOPHENOLATE [Suspect]
     Active Substance: MYCOPHENOLIC ACID
     Indication: RENAL TRANSPLANT
     Route: 048
     Dates: start: 20180130
  11. ATORVASTATIN [Concomitant]
     Active Substance: ATORVASTATIN
  12. CLOPIDOGREL [Concomitant]
     Active Substance: CLOPIDOGREL BISULFATE
  13. LOSARTAN. [Concomitant]
     Active Substance: LOSARTAN
  14. SOLIFENACIN [Concomitant]
     Active Substance: SOLIFENACIN
  15. VIMPAT [Concomitant]
     Active Substance: LACOSAMIDE
  16. FOLIC ACID. [Concomitant]
     Active Substance: FOLIC ACID
  17. QUETIAPINE. [Concomitant]
     Active Substance: QUETIAPINE
  18. TRAZODONE [Concomitant]
     Active Substance: TRAZODONE HYDROCHLORIDE

REACTIONS (3)
  - Cerebral haemorrhage [None]
  - Brain injury [None]
  - Fall [None]

NARRATIVE: CASE EVENT DATE: 20210712
